FAERS Safety Report 24932376 (Version 1)
Quarter: 2025Q1

REPORT INFORMATION
  Report Type: Report from Study
  Country: US (occurrence: US)
  Receive Date: 20250205
  Receipt Date: 20250205
  Transmission Date: 20250409
  Serious: No
  Sender: EXELIXIS
  Company Number: US-EXELIXIS-CABO-24080498

PATIENT
  Sex: Female

DRUGS (1)
  1. CABOMETYX [Suspect]
     Active Substance: CABOZANTINIB S-MALATE
     Indication: Hepatocellular carcinoma
     Dosage: 60 MG, QD
     Route: 048
     Dates: start: 202407

REACTIONS (14)
  - Alopecia [Unknown]
  - Hyperkeratosis [Unknown]
  - Skin exfoliation [Unknown]
  - Headache [Unknown]
  - Fatigue [Unknown]
  - Pain in extremity [Unknown]
  - Skin ulcer [Unknown]
  - Dry skin [Unknown]
  - Candida infection [Unknown]
  - Burning sensation [Unknown]
  - Musculoskeletal discomfort [Unknown]
  - Urinary tract infection [Unknown]
  - Skin fissures [Unknown]
  - Ulcer [Unknown]
